FAERS Safety Report 16937005 (Version 1)
Quarter: 2019Q4

REPORT INFORMATION
  Report Type: Spontaneous
  Country: GB (occurrence: GB)
  Receive Date: 20191018
  Receipt Date: 20191018
  Transmission Date: 20200122
  Serious: Yes (Other)
  Sender: FDA-Public Use
  Company Number: GB-BEH-2019108015

PATIENT
  Sex: Male

DRUGS (5)
  1. BERINERT [Suspect]
     Active Substance: HUMAN C1-ESTERASE INHIBITOR
     Indication: ACQUIRED C1 INHIBITOR DEFICIENCY
     Dosage: UNK UNK, PRN
     Route: 065
  2. BERINERT [Suspect]
     Active Substance: HUMAN C1-ESTERASE INHIBITOR
     Indication: PROPHYLAXIS
  3. BERINERT [Suspect]
     Active Substance: HUMAN C1-ESTERASE INHIBITOR
     Indication: PROPHYLAXIS
  4. BERINERT [Suspect]
     Active Substance: HUMAN C1-ESTERASE INHIBITOR
     Indication: ACQUIRED C1 INHIBITOR DEFICIENCY
     Dosage: UNK UNK, PRN
     Route: 065
  5. TRANEXAMIC ACID. [Suspect]
     Active Substance: TRANEXAMIC ACID
     Indication: ACQUIRED C1 INHIBITOR DEFICIENCY
     Dosage: UNK
     Dates: start: 2015

REACTIONS (4)
  - Swelling face [Unknown]
  - No adverse event [Unknown]
  - B-cell small lymphocytic lymphoma [Unknown]
  - Product use in unapproved indication [Unknown]

NARRATIVE: CASE EVENT DATE: 201507
